FAERS Safety Report 8351478-2 (Version None)
Quarter: 2012Q2

REPORT INFORMATION
  Report Type: 
  Country: None (occurrence: None)
  Receive Date: 20120510
  Receipt Date: 20120504
  Transmission Date: 20120825
  Serious: Yes (Hospitalization, Other)
  Sender: FDA-Public Use
  Company Number: US-ASTRAZENECA-2011SE32185

PATIENT
  Age: 50 Year
  Sex: Female
  Weight: 83.9 kg

DRUGS (21)
  1. NEXIUM [Suspect]
     Indication: GASTROOESOPHAGEAL REFLUX DISEASE
     Route: 048
     Dates: start: 20050117
  2. VITAMINS SUPPLEMENTS [Concomitant]
  3. VIVELLE-DOT [Concomitant]
     Dosage: 0.1 MG DIS
     Dates: start: 20060220
  4. NEXIUM [Suspect]
     Route: 048
     Dates: start: 20060101, end: 20060101
  5. NEXIUM [Suspect]
     Route: 048
     Dates: start: 20060201, end: 20060201
  6. ZANTAC [Concomitant]
     Dosage: 75 MG TO 150 MG
  7. PEPCID [Concomitant]
  8. PREMARIN [Concomitant]
     Route: 048
     Dates: start: 20060201, end: 20090601
  9. IBUPROFEN [Concomitant]
     Indication: HEADACHE
     Dates: start: 20060227
  10. IBUPROFEN [Concomitant]
     Dosage: AS NEEDED
     Dates: start: 20090601
  11. TYLENOL (CAPLET) [Concomitant]
     Indication: HEADACHE
     Dosage: AS NEEDED
  12. ACETAMINOPHEN AND HYDROCODONE BITARTRATE [Concomitant]
     Dosage: 5-500 MG
     Dates: start: 20060127
  13. TAGAMET [Concomitant]
  14. FIBER SUPPLEMENT [Concomitant]
  15. SUDAFED 12 HOUR [Concomitant]
     Indication: SINUS CONGESTION
     Dosage: AS NEEDED
  16. CEPHADYN [Concomitant]
     Dosage: 650-50 TAB
  17. PROPO-N/APAP [Concomitant]
     Dosage: 100-650 TAB
     Dates: start: 20050221
  18. PHENAZOPYRID PLUS [Concomitant]
     Dates: start: 20060301
  19. NEXIUM [Suspect]
     Route: 048
     Dates: start: 20060201, end: 20110401
  20. ETODOLAC [Concomitant]
     Dates: start: 20060123
  21. NESCON PD [Concomitant]
     Dosage: 25-275 MG
     Dates: start: 20060123

REACTIONS (12)
  - OSTEOPOROTIC FRACTURE [None]
  - COMPLEX REGIONAL PAIN SYNDROME [None]
  - QUALITY OF LIFE DECREASED [None]
  - OSTEOPOROSIS [None]
  - ABASIA [None]
  - DEPRESSION [None]
  - HYPOKINESIA [None]
  - FOOT FRACTURE [None]
  - BONE DENSITY DECREASED [None]
  - COLITIS ISCHAEMIC [None]
  - GASTRIC ULCER [None]
  - ABDOMINAL PAIN [None]
